FAERS Safety Report 8965692 (Version 1)
Quarter: 2012Q4

REPORT INFORMATION
  Report Type: Spontaneous
  Country: US (occurrence: None)
  Receive Date: 20121212
  Receipt Date: 20121212
  Transmission Date: 20130627
  Serious: No
  Sender: FDA-Public Use
  Company Number: None

PATIENT
  Age: 56 Year
  Sex: Male
  Weight: 81.65 kg

DRUGS (1)
  1. PANTOPRAZOLE SOD DR 40 LONE OAK PHARMACY [Suspect]
     Indication: GERD
     Route: 048
     Dates: start: 20121010, end: 20121210

REACTIONS (5)
  - Urticaria [None]
  - Arthralgia [None]
  - Muscular weakness [None]
  - Amnesia [None]
  - Disturbance in attention [None]
